FAERS Safety Report 9938017 (Version 2)
Quarter: 2014Q2

REPORT INFORMATION
  Report Type: Report from Study
  Country: IT (occurrence: IT)
  Receive Date: 20140303
  Receipt Date: 20140429
  Transmission Date: 20141212
  Serious: Yes (Hospitalization)
  Sender: FDA-Public Use
  Company Number: IT-ROCHE-1357956

PATIENT
  Age: 48 Year
  Sex: Male
  Weight: 71 kg

DRUGS (15)
  1. RIBAVIRIN [Suspect]
     Indication: HEPATITIS C
     Route: 048
     Dates: start: 20131209, end: 20140208
  2. RIBAVIRIN [Suspect]
     Dosage: IN THE MORNING
     Route: 048
     Dates: start: 20140213, end: 20140328
  3. SOFOSBUVIR [Suspect]
     Indication: HEPATITIS C
     Route: 048
     Dates: start: 20130930, end: 20140328
  4. RED BLOOD CELLS [Concomitant]
     Dosage: TRANSFUSED WITH ONE PACKED
     Route: 065
     Dates: start: 20140208
  5. RED BLOOD CELLS [Concomitant]
     Dosage: THREE UNITS OF PACKED RED BLOOD CELLS
     Route: 065
  6. RALTEGRAVIR [Concomitant]
     Route: 065
     Dates: start: 20130812
  7. MARAVIROC [Concomitant]
     Route: 065
     Dates: start: 20130812
  8. LAMIVUDINE [Concomitant]
     Route: 065
     Dates: start: 20060807
  9. CYCLOSPORINE [Concomitant]
     Route: 065
     Dates: start: 20130701
  10. METHYLPREDNISOLONE [Concomitant]
     Route: 065
     Dates: start: 20130701
  11. METHYLPREDNISOLONE [Concomitant]
     Route: 065
  12. VALGANCICLOVIR [Concomitant]
     Route: 065
     Dates: start: 20130701, end: 20140208
  13. CO-TRIMOXAZOLE [Concomitant]
     Route: 065
     Dates: start: 20130701, end: 20140120
  14. BISOPROLOL [Concomitant]
     Route: 065
     Dates: start: 20130809
  15. EPOETIN ALFA [Concomitant]
     Route: 065
     Dates: start: 20131020

REACTIONS (3)
  - Blood creatinine increased [Recovered/Resolved]
  - Anaemia [Unknown]
  - Neutropenia [Recovered/Resolved]
